FAERS Safety Report 17157484 (Version 1)
Quarter: 2019Q4

REPORT INFORMATION
  Report Type: Spontaneous
  Country: US (occurrence: US)
  Receive Date: 20191121
  Receipt Date: 20191121
  Transmission Date: 20200122
  Serious: Yes (Hospitalization)
  Sender: FDA-Public Use
  Company Number: None

PATIENT
  Age: 78 Year
  Sex: Female

DRUGS (21)
  1. OXYBUYNIN [Concomitant]
  2. ASCORBIC ACID. [Concomitant]
     Active Substance: ASCORBIC ACID
  3. FISH OIL [Concomitant]
     Active Substance: FISH OIL
  4. MVI W/ MINERALS [Concomitant]
  5. LISINOPRIL. [Concomitant]
     Active Substance: LISINOPRIL
  6. ANASTROZOLE. [Concomitant]
     Active Substance: ANASTROZOLE
  7. DICLOFENAC TOP GEL [Concomitant]
  8. ALBUTEROL NEB SOLN [Concomitant]
  9. PRAVASTATIN. [Concomitant]
     Active Substance: PRAVASTATIN
  10. GABAPENTIN. [Concomitant]
     Active Substance: GABAPENTIN
  11. POTASSIUM CHLORIDE. [Concomitant]
     Active Substance: POTASSIUM CHLORIDE
  12. ADVAIR HFA [Concomitant]
     Active Substance: FLUTICASONE PROPIONATE\SALMETEROL XINAFOATE
  13. VERAPAMIL [Concomitant]
     Active Substance: VERAPAMIL HYDROCHLORIDE
  14. OPSUMIT [Suspect]
     Active Substance: MACITENTAN
     Indication: PULMONARY ARTERIAL HYPERTENSION
     Route: 048
     Dates: start: 201908, end: 201911
  15. OMEPRAZOLE. [Concomitant]
     Active Substance: OMEPRAZOLE
  16. MELOXICAM. [Concomitant]
     Active Substance: MELOXICAM
  17. TYLENOL [Concomitant]
     Active Substance: ACETAMINOPHEN
  18. TADALAFIL. [Concomitant]
     Active Substance: TADALAFIL
  19. TORSEMIDE. [Concomitant]
     Active Substance: TORSEMIDE
  20. VITAMIN D3 [Concomitant]
     Active Substance: CHOLECALCIFEROL
  21. REFRESH OPHT DROP [Concomitant]

REACTIONS (5)
  - Oxygen saturation abnormal [None]
  - Dyspnoea [None]
  - Condition aggravated [None]
  - Oedema peripheral [None]
  - Fluid overload [None]

NARRATIVE: CASE EVENT DATE: 20191105
